FAERS Safety Report 9116501 (Version 2)
Quarter: 2013Q1

REPORT INFORMATION
  Report Type: Report from Study
  Country: BE (occurrence: BE)
  Receive Date: 20130225
  Receipt Date: 20130313
  Transmission Date: 20140127
  Serious: Yes (Hospitalization)
  Sender: FDA-Public Use
  Company Number: PHHO2013BE002841

PATIENT
  Age: 83 Year
  Sex: Female

DRUGS (12)
  1. AMIODARONE [Suspect]
  2. BLINDED ACZ885 [Suspect]
     Indication: CARDIOVASCULAR EVENT PROPHYLAXIS
     Dosage: DOUBLE BLIND
     Route: 048
     Dates: start: 20120625, end: 20120924
  3. BLINDED NO TREATMENT RECEIVED [Suspect]
     Indication: CARDIOVASCULAR EVENT PROPHYLAXIS
     Dosage: DOUBLE BLIND
     Route: 048
     Dates: start: 20120625, end: 20120924
  4. BLINDED PLACEBO [Suspect]
     Indication: CARDIOVASCULAR EVENT PROPHYLAXIS
     Dosage: DOUBLE BLIND
     Route: 048
     Dates: start: 20120625, end: 20120924
  5. MAREVAN [Concomitant]
     Dates: start: 20120727
  6. EMCONCOR [Concomitant]
  7. LIPANTHYL [Concomitant]
     Dosage: 1 X
  8. ZANIDIP [Concomitant]
     Dosage: 20 MG, QD  (1X)
  9. BELSAR [Concomitant]
     Dosage: 40 MG, QD (1X)
  10. DAFLON [Concomitant]
     Dosage: 500 2X
  11. LASIX [Concomitant]
     Dosage: 40 MG, QD
  12. PANTOMED [Concomitant]
     Dosage: 40 MG, QD  (1X)

REACTIONS (1)
  - Atrial fibrillation [Not Recovered/Not Resolved]
